FAERS Safety Report 7774947-2 (Version None)
Quarter: 2011Q3

REPORT INFORMATION
  Report Type: 
  Country: None (occurrence: None)
  Receive Date: 20110923
  Receipt Date: 20110908
  Transmission Date: 20111222
  Serious: Yes (Life-Threatening, Other)
  Sender: FDA-Public Use
  Company Number: PHEH2011US03663

PATIENT
  Sex: Female

DRUGS (9)
  1. ALPRAZOLAM [Suspect]
  2. LESCOL XL [Suspect]
     Dosage: UNK
  3. SIMVASTATIN [Suspect]
     Dosage: UNK
  4. MICARDIS HCT [Suspect]
  5. ATACAND [Suspect]
  6. FLUVASTATIN [Suspect]
  7. DICYCLOMINE [Suspect]
  8. ANTIHYPERTENSIVE DRUGS [Suspect]
  9. ANTIBIOTICS [Suspect]
     Dosage: UNK

REACTIONS (9)
  - EPISTAXIS [None]
  - DYSSTASIA [None]
  - BLOOD PRESSURE INCREASED [None]
  - MALAISE [None]
  - FEELING ABNORMAL [None]
  - DRUG HYPERSENSITIVITY [None]
  - DEAFNESS [None]
  - OEDEMA PERIPHERAL [None]
  - EYE DISORDER [None]
